FAERS Safety Report 21730476 (Version 3)
Quarter: 2023Q1

REPORT INFORMATION
  Report Type: Spontaneous
  Country: US (occurrence: US)
  Receive Date: 20221215
  Receipt Date: 20230222
  Transmission Date: 20230418
  Serious: Yes (Death, Other)
  Sender: FDA-Public Use
  Company Number: US-JNJFOC-20221212010

PATIENT
  Sex: Male

DRUGS (1)
  1. TREMFYA [Suspect]
     Active Substance: GUSELKUMAB
     Indication: Product used for unknown indication
     Route: 065

REACTIONS (5)
  - Death [Fatal]
  - Pancreatic carcinoma [Unknown]
  - Decreased immune responsiveness [Unknown]
  - Product storage error [Unknown]
  - Product use complaint [Unknown]

NARRATIVE: CASE EVENT DATE: 20220101
